FAERS Safety Report 6494335-9 (Version None)
Quarter: 2009Q4

REPORT INFORMATION
  Report Type: 
  Country: None (occurrence: None)
  Receive Date: 20091214
  Receipt Date: 20090210
  Transmission Date: 20100525
  Serious: Yes (Hospitalization)
  Sender: FDA-Public Use
  Company Number: US-BRISTOL-MYERS SQUIBB COMPANY-14499354

PATIENT
  Age: 47 Year
  Sex: Female
  Weight: 107 kg

DRUGS (17)
  1. ABILIFY [Suspect]
     Indication: BIPOLAR DISORDER
     Dates: end: 20090201
  2. INDOCIN [Concomitant]
     Dates: start: 20090122
  3. POTASSIUM [Concomitant]
     Dates: start: 20090127
  4. AZMACORT [Concomitant]
     Dosage: 1 DOSAGE FORM = 2 PUFFS DAILY FOR A ^LONG TIME^
     Route: 055
  5. ADVAIR DISKUS 100/50 [Concomitant]
     Dosage: INHALER
     Route: 055
  6. SPIRIVA [Concomitant]
     Dosage: INHALER
     Route: 055
  7. HYDRALAZINE HCL [Concomitant]
     Dates: start: 20070101
  8. XANAX [Concomitant]
  9. LISINOPRIL [Concomitant]
     Dates: start: 20090127
  10. NEURONTIN [Concomitant]
     Dosage: 300MG DAILY FOR 2 WEEKS THEN TID SINCE 23JAN2009
  11. CATAPRES [Concomitant]
     Dates: start: 20070101
  12. ZOCOR [Concomitant]
     Dates: start: 20070101
  13. LASIX [Concomitant]
     Dates: start: 20080101
  14. TOPROL-XL [Concomitant]
     Dosage: TAKEN FOR LONG TIME
  15. LOVAZA [Concomitant]
     Dates: start: 20080101
  16. CARDIZEM [Concomitant]
     Dates: start: 20070101
  17. VALIUM [Concomitant]
     Dates: start: 20090204

REACTIONS (1)
  - CONVULSION [None]
